FAERS Safety Report 4611028-0 (Version None)
Quarter: 2005Q1

REPORT INFORMATION
  Report Type: 
  Country: None (occurrence: None)
  Receive Date: 20050317
  Receipt Date: 20050309
  Transmission Date: 20050727
  Serious: Yes (Hospitalization, Other)
  Sender: FDA-Public Use
  Company Number: 200512242GDDC

PATIENT
  Age: 67 Year
  Sex: Female

DRUGS (5)
  1. CLEXANE [Suspect]
     Indication: ACUTE MYOCARDIAL INFARCTION
     Dosage: DOSE: UNK
     Route: 058
     Dates: start: 19980101, end: 19980801
  2. FRUSEMIDE [Concomitant]
     Route: 048
     Dates: start: 19980704, end: 19980710
  3. LISINOPRIL [Concomitant]
     Route: 048
     Dates: start: 19980704, end: 19980710
  4. PAROXETINE HCL [Concomitant]
     Route: 048
     Dates: start: 19980701, end: 19980710
  5. POTASSIUM CHLORIDE [Concomitant]
     Dosage: DOSE: 2 DAILY DOSE FORM
     Route: 048
     Dates: start: 19980704, end: 19980710

REACTIONS (4)
  - ANAEMIA [None]
  - HAEMATOMA [None]
  - HYPOTENSION [None]
  - PURPURA [None]
